FAERS Safety Report 15237740 (Version 1)
Quarter: 2018Q3

REPORT INFORMATION
  Report Type: Other
  Country: None (occurrence: FR)
  Receive Date: 20180803
  Receipt Date: 20180803
  Transmission Date: 20181010
  Serious: Yes (Life-Threatening, Hospitalization, Other)
  Sender: FDA-Public Use
  Company Number: FR-MEDAC PHARMA, INC.-2053164

PATIENT
  Age: 52 Year
  Sex: Male

DRUGS (1)
  1. METHOTREXATE. [Suspect]
     Active Substance: METHOTREXATE

REACTIONS (9)
  - Hepatic failure [Unknown]
  - Dermatitis exfoliative generalised [Unknown]
  - Skin toxicity [Unknown]
  - Acute kidney injury [Unknown]
  - Overdose [Unknown]
  - Skin dystrophy [Unknown]
  - Pancytopenia [Unknown]
  - Mucormycosis [Recovering/Resolving]
  - Aplasia [Recovering/Resolving]
